FAERS Safety Report 17875188 (Version 1)
Quarter: 2020Q2

REPORT INFORMATION
  Report Type: Spontaneous
  Country: FR (occurrence: FR)
  Receive Date: 20200609
  Receipt Date: 20200609
  Transmission Date: 20200714
  Serious: Yes (Other)
  Sender: FDA-Public Use
  Company Number: FR-TEVA-2020-FR-1244941

PATIENT
  Age: 54 Year
  Sex: Male

DRUGS (4)
  1. TAVANIC [Suspect]
     Active Substance: LEVOFLOXACIN
     Indication: LEGIONELLA INFECTION
     Route: 048
     Dates: start: 20190906, end: 20190909
  2. AUGMENTIN [Suspect]
     Active Substance: AMOXICILLIN\CLAVULANATE POTASSIUM
     Indication: LEGIONELLA INFECTION
     Route: 065
     Dates: start: 20190903, end: 20190906
  3. AZITHROMYCINE DIHYDRATEE [Suspect]
     Active Substance: AZITHROMYCIN DIHYDRATE
     Indication: LEGIONELLA INFECTION
     Route: 048
     Dates: start: 20190909, end: 20190918
  4. SPIRAMYCINE [Suspect]
     Active Substance: SPIRAMYCIN
     Indication: LEGIONELLA INFECTION
     Route: 048
     Dates: start: 20190906, end: 20190908

REACTIONS (1)
  - Rash maculo-papular [Recovered/Resolved]

NARRATIVE: CASE EVENT DATE: 20190912
